FAERS Safety Report 9291562 (Version 1)
Quarter: 2013Q2

REPORT INFORMATION
  Report Type: Spontaneous
  Country: GB (occurrence: GB)
  Receive Date: 20130515
  Receipt Date: 20130515
  Transmission Date: 20140414
  Serious: Yes (Life-Threatening, Hospitalization)
  Sender: FDA-Public Use
  Company Number: GB-MYLANLABS-2013S1009624

PATIENT
  Age: 73 Year
  Sex: Male
  Weight: 85 kg

DRUGS (4)
  1. CITALOPRAM [Suspect]
     Indication: MAJOR DEPRESSION
     Route: 048
     Dates: start: 20111114, end: 20130311
  2. CALCICHEW D3 [Concomitant]
     Indication: PRODUCT USED FOR UNKNOWN INDICATION
  3. OMEPRAZOLE SODIUM [Concomitant]
     Indication: PRODUCT USED FOR UNKNOWN INDICATION
  4. THIAMINE [Concomitant]
     Indication: PRODUCT USED FOR UNKNOWN INDICATION

REACTIONS (10)
  - Subcutaneous abscess [Recovering/Resolving]
  - Candida infection [Recovering/Resolving]
  - Swelling face [Recovering/Resolving]
  - Haematemesis [Recovering/Resolving]
  - Oesophagitis [Recovering/Resolving]
  - Oral disorder [Recovering/Resolving]
  - Pemphigus [Recovering/Resolving]
  - Erythema [Recovering/Resolving]
  - Swollen tongue [Recovering/Resolving]
  - Tongue ulceration [Recovering/Resolving]
